FAERS Safety Report 7661220-6 (Version None)
Quarter: 2011Q3

REPORT INFORMATION
  Report Type: 
  Country: None (occurrence: None)
  Receive Date: 20110805
  Receipt Date: 20101115
  Transmission Date: 20111222
  Serious: No
  Sender: FDA-Public Use
  Company Number: US-ABBOTT-10P-163-0685398-00

PATIENT
  Sex: Male
  Weight: 106.24 kg

DRUGS (6)
  1. NIASPAN [Suspect]
     Indication: DRUG INTOLERANCE
  2. DIOVAN [Concomitant]
     Indication: PRODUCT USED FOR UNKNOWN INDICATION
     Route: 048
  3. NAPROXEN [Concomitant]
     Indication: BACK PAIN
     Route: 048
  4. ALPRAZOLAM [Concomitant]
     Indication: ANXIETY
     Dosage: DAILY AS NEEDED
     Route: 048
  5. CIALIS [Concomitant]
     Indication: PRODUCT USED FOR UNKNOWN INDICATION
     Route: 048
  6. NIASPAN [Suspect]
     Indication: DYSLIPIDAEMIA
     Dosage: DAILY AT BEDTIME
     Route: 048
     Dates: start: 20101108

REACTIONS (2)
  - SOMNOLENCE [None]
  - FATIGUE [None]
